FAERS Safety Report 12778468 (Version 3)
Quarter: 2017Q3

REPORT INFORMATION
  Report Type: Report from Study
  Country: US (occurrence: US)
  Receive Date: 20160926
  Receipt Date: 20170802
  Transmission Date: 20171127
  Serious: Yes (Other)
  Sender: FDA-Public Use
  Company Number: US-BRISTOL-MYERS SQUIBB COMPANY-BMS-2016-078782

PATIENT
  Sex: Male

DRUGS (2)
  1. ARIPIPRAZOLE. [Suspect]
     Active Substance: ARIPIPRAZOLE
     Indication: BIPOLAR DISORDER
     Dosage: 20 MG, QD
     Route: 048
     Dates: end: 201607
  2. ABILIFY MAINTENA [Suspect]
     Active Substance: ARIPIPRAZOLE
     Indication: PRODUCT USED FOR UNKNOWN INDICATION
     Route: 065

REACTIONS (9)
  - Impaired quality of life [Unknown]
  - Gambling [Unknown]
  - Drug dose omission [Unknown]
  - Schizophrenia [Unknown]
  - Prescribed overdose [Unknown]
  - Nightmare [Unknown]
  - Insomnia [Recovered/Resolved]
  - Abdominal pain upper [Unknown]
  - Vomiting [Unknown]
